FAERS Safety Report 21118972 (Version 2)
Quarter: 2022Q3

REPORT INFORMATION
  Report Type: Spontaneous
  Country: JP (occurrence: JP)
  Receive Date: 20220722
  Receipt Date: 20220726
  Transmission Date: 20221027
  Serious: Yes (Other)
  Sender: FDA-Public Use
  Company Number: JP-SA-2021SA088736

PATIENT
  Age: 73 Year
  Sex: Male

DRUGS (3)
  1. CISPLATIN [Suspect]
     Active Substance: CISPLATIN
     Indication: Oropharyngeal cancer stage IV
     Dosage: CUMULATIVE DOSE: 1 CYCLICAL, ON DAY 1
  2. DOCETAXEL [Suspect]
     Active Substance: DOCETAXEL
     Indication: Oropharyngeal cancer stage IV
     Dosage: CUMULATIVE DOSE: 1 CYCLICAL, ON DAY 1
  3. FLUOROURACIL [Suspect]
     Active Substance: FLUOROURACIL
     Indication: Oropharyngeal cancer stage IV
     Dosage: CUMULATIVE DOSE: 1 CYCLICAL, 750 MG/M2/DAY ON DAYS 1 TO 5

REACTIONS (1)
  - Impaired gastric emptying [Recovered/Resolved]
